FAERS Safety Report 7017052-5 (Version None)
Quarter: 2010Q3

REPORT INFORMATION
  Report Type: 
  Country: None (occurrence: None)
  Receive Date: 20100927
  Receipt Date: 20100918
  Transmission Date: 20110219
  Serious: No
  Sender: FDA-Public Use
  Company Number: US-PFIZER INC-2010119077

PATIENT
  Sex: Female
  Weight: 63.492 kg

DRUGS (11)
  1. CHANTIX [Suspect]
     Indication: SMOKING CESSATION THERAPY
     Dosage: 0.5 MG, 1X/DAY
     Route: 048
     Dates: start: 20100910, end: 20100901
  2. CHANTIX [Suspect]
     Dosage: 1 MG, 2X/DAY
     Route: 048
     Dates: start: 20100915
  3. PERCOCET [Concomitant]
     Dosage: 7.5 MG, UNK
  4. METHADONE [Concomitant]
     Dosage: 5 MG, UNK
  5. AMBIEN [Concomitant]
     Dosage: UNK
  6. NEXIUM [Concomitant]
     Dosage: UNK
  7. LYRICA [Concomitant]
     Dosage: UNK
  8. RELAFEN [Concomitant]
     Dosage: UNK
  9. MIRAPEX [Concomitant]
     Dosage: UNK
  10. PAMELOR [Concomitant]
     Dosage: UNK
  11. TRAZODONE [Concomitant]
     Dosage: UNK

REACTIONS (3)
  - MIGRAINE [None]
  - NAUSEA [None]
  - VOMITING [None]
